FAERS Safety Report 24119003 (Version 2)
Quarter: 2024Q3

REPORT INFORMATION
  Report Type: Spontaneous
  Country: US (occurrence: US)
  Receive Date: 20240722
  Receipt Date: 20240801
  Transmission Date: 20241016
  Serious: No
  Sender: BAXTER
  Company Number: US-BAXTER-2024BAX021703

PATIENT
  Age: 67 Year
  Weight: 65.5 kg

DRUGS (1)
  1. MYXREDLIN [Suspect]
     Active Substance: INSULIN HUMAN
     Dosage: UNSPECIFIED DOSE AND FREQUENCY DRIP STARTED 10:15 AT  6 UNITS/HR, RATE CHANGED TO 7 UNITS/HR, RATE C
     Route: 065
     Dates: start: 20240630

REACTIONS (1)
  - Drug ineffective [Recovered/Resolved]

NARRATIVE: CASE EVENT DATE: 20240630
